FAERS Safety Report 12076530 (Version 1)
Quarter: 2016Q1

REPORT INFORMATION
  Report Type: Spontaneous
  Country: US (occurrence: US)
  Receive Date: 20160215
  Receipt Date: 20160215
  Transmission Date: 20160526
  Serious: Yes (Hospitalization, Other)
  Sender: FDA-Public Use
  Company Number: US-BAYER-2016-026447

PATIENT
  Age: 57 Year
  Sex: Male
  Weight: 106.58 kg

DRUGS (1)
  1. MIRALAX [Suspect]
     Active Substance: POLYETHYLENE GLYCOL 3350
     Indication: CONSTIPATION
     Dosage: 1 DF, QD
     Route: 048
     Dates: start: 201506, end: 20160209

REACTIONS (8)
  - Hypersensitivity [None]
  - Haemorrhage [None]
  - Anorectal swelling [None]
  - Off label use [None]
  - Pain [None]
  - Gastrointestinal pain [None]
  - Abdominal distension [None]
  - Dysuria [None]

NARRATIVE: CASE EVENT DATE: 201601
